FAERS Safety Report 18463521 (Version 6)
Quarter: 2020Q4

REPORT INFORMATION
  Report Type: Spontaneous
  Country: US (occurrence: US)
  Receive Date: 20201104
  Receipt Date: 20201211
  Transmission Date: 20210114
  Serious: Yes (Hospitalization)
  Sender: FDA-Public Use
  Company Number: US-PFIZER INC-2020426402

PATIENT
  Age: 79 Year
  Sex: Female
  Weight: 63.5 kg

DRUGS (6)
  1. SOMAVERT [Suspect]
     Active Substance: PEGVISOMANT
     Dosage: 10 MG (6 DAYS A WEEK)
  2. SOMAVERT [Suspect]
     Active Substance: PEGVISOMANT
     Dosage: 15 MG, 6 DAYS A WEEK
  3. SOMAVERT [Suspect]
     Active Substance: PEGVISOMANT
     Dosage: 10 MG, DAILY
  4. SOMAVERT [Suspect]
     Active Substance: PEGVISOMANT
     Dosage: 10 MG (3 DAYS A WEEK)
  5. SOMAVERT [Suspect]
     Active Substance: PEGVISOMANT
     Indication: ACROMEGALY
     Dosage: UNK (100CC^S INJECTED ARM OR STOMACH 6 DAYS A WEEK)
  6. SANDOSTATINA [OCTREOTIDE ACETATE] [Concomitant]
     Active Substance: OCTREOTIDE ACETATE
     Dosage: 300 UG, 4X/DAY (INJECT 300 MCG OR 30 UNITS ON INSULIN SYRINGE INTO SKIN 4 TIMES DAILY)
     Route: 051
     Dates: start: 1988

REACTIONS (9)
  - Off label use [Unknown]
  - Product dose omission issue [Unknown]
  - Dysphonia [Not Recovered/Not Resolved]
  - Condition aggravated [Not Recovered/Not Resolved]
  - Thinking abnormal [Unknown]
  - Memory impairment [Not Recovered/Not Resolved]
  - Cerebrovascular accident [Recovered/Resolved with Sequelae]
  - Intentional product misuse [Unknown]
  - Speech disorder [Unknown]

NARRATIVE: CASE EVENT DATE: 202011
